FAERS Safety Report 16370508 (Version 1)
Quarter: 2019Q2

REPORT INFORMATION
  Report Type: Spontaneous
  Country: US (occurrence: US)
  Receive Date: 20190423
  Receipt Date: 20190423
  Transmission Date: 20190711
  Serious: Yes (Disabling)
  Sender: FDA-Public Use
  Company Number: None

PATIENT
  Age: 65 Year
  Sex: Female
  Weight: 58.06 kg

DRUGS (1)
  1. IC-CITALOPRAM HBR 20MG [Suspect]
     Active Substance: CITALOPRAM HYDROBROMIDE
     Indication: ANXIETY
     Dosage: ?          QUANTITY:26 DF DOSAGE FORM;?
     Route: 048
     Dates: start: 20190108, end: 20190302

REACTIONS (4)
  - Photophobia [None]
  - Rash [None]
  - Vision blurred [None]
  - Product use complaint [None]

NARRATIVE: CASE EVENT DATE: 20190128
